FAERS Safety Report 13032924 (Version 1)
Quarter: 2016Q4

REPORT INFORMATION
  Report Type: Spontaneous
  Country: US (occurrence: US)
  Receive Date: 20161215
  Receipt Date: 20161215
  Transmission Date: 20170207
  Serious: No
  Sender: FDA-Public Use
  Company Number: US-BION-20160074

PATIENT
  Sex: Female

DRUGS (1)
  1. VITAMIN D ERGOCALCIFEROL CAPSULES, USP [Suspect]
     Active Substance: ERGOCALCIFEROL
     Dates: start: 201603, end: 20160413

REACTIONS (3)
  - Nausea [Unknown]
  - Arthritis [Unknown]
  - Central nervous system inflammation [Unknown]
